FAERS Safety Report 5731896-9 (Version None)
Quarter: 2008Q2

REPORT INFORMATION
  Report Type: 
  Country: None (occurrence: None)
  Receive Date: 20080508
  Receipt Date: 20080424
  Transmission Date: 20081010
  Serious: Yes (Hospitalization)
  Sender: FDA-Public Use
  Company Number: DE-GENENTECH-260386

PATIENT
  Sex: Female

DRUGS (2)
  1. TRASTUZUMAB [Suspect]
     Indication: BREAST CANCER METASTATIC
     Dosage: 150 MG, 1/WEEK
     Route: 065
  2. TRASTUZUMAB [Suspect]
     Dosage: 450 MG, 1/WEEK
     Route: 065
     Dates: start: 20071206

REACTIONS (2)
  - MASTITIS [None]
  - SEROMA [None]
